FAERS Safety Report 5385420-3 (Version None)
Quarter: 2007Q3

REPORT INFORMATION
  Report Type: 
  Country: None (occurrence: None)
  Receive Date: 20070709
  Receipt Date: 20070624
  Transmission Date: 20080115
  Serious: Yes (Life-Threatening, Hospitalization)
  Sender: FDA-Public Use
  Company Number: VNL_00614_2007

PATIENT
  Sex: Male

DRUGS (11)
  1. APO-GO (APOMORPHINE HYDROCHLORIDE) [Suspect]
     Indication: PARKINSONISM
     Dosage: (60 - 100 MG/DAY FOR 4 WEEKS 2 DAYS SUBCUTANEOUS)
     Route: 058
     Dates: start: 20070510, end: 20070608
  2. APO-GO (APOMORPHINE HYDROCHLORIDE) [Suspect]
     Indication: PARKINSONISM
     Dosage: (UNKNOWN DOSE AND FREQUENCY FOR 4 DAYS SUBCUTANEOUS)
     Route: 058
     Dates: start: 20070608, end: 20070611
  3. CIPROBAY /00697201/ (CIPROFLAXIN) (NOT SPECIFIED) [Suspect]
     Indication: INFLAMMATION
     Dosage: (500 MG BID ORAL)
     Route: 048
     Dates: start: 20070523, end: 20070528
  4. PK-MERZ [Concomitant]
  5. STALEVO 100 [Concomitant]
  6. RASAGILINE [Concomitant]
  7. VITAMIN B12 /00056201/ [Concomitant]
  8. DIGITOXIN TAB [Concomitant]
  9. ATACAND [Concomitant]
  10. LISINOPRIL [Concomitant]
  11. TOREM /01036501/ [Concomitant]

REACTIONS (6)
  - GASTROENTERITIS NORWALK VIRUS [None]
  - GENERAL PHYSICAL HEALTH DETERIORATION [None]
  - INFLAMMATION [None]
  - ROTAVIRUS TEST POSITIVE [None]
  - THROMBOCYTOPENIA [None]
  - TREATMENT FAILURE [None]
